FAERS Safety Report 9890295 (Version 6)
Quarter: 2014Q3

REPORT INFORMATION
  Report Type: Report from Study
  Country: US (occurrence: US)
  Receive Date: 20140212
  Receipt Date: 20140710
  Transmission Date: 20150326
  Serious: Yes (Hospitalization)
  Sender: FDA-Public Use
  Company Number: US-BRISTOL-MYERS SQUIBB COMPANY-20156030

PATIENT
  Age: 68 Year
  Sex: Male
  Weight: 71.2 kg

DRUGS (2)
  1. CHINESE HERBS [Suspect]
     Active Substance: HERBS\ROOTS
  2. IPILIMUMAB [Suspect]
     Active Substance: IPILIMUMAB
     Indication: MALIGNANT MELANOMA
     Dosage: LAST DOSE: 13JAN2014?213.6MG?MAINT THERAPY:Q12WEEK24,36,48,60?LAST DOSE:13JAN14
     Route: 042
     Dates: start: 20131202

REACTIONS (2)
  - Autoimmune disorder [Recovered/Resolved]
  - Hepatobiliary disease [Recovered/Resolved]

NARRATIVE: CASE EVENT DATE: 20140128
